FAERS Safety Report 8533220-5 (Version None)
Quarter: 2012Q3

REPORT INFORMATION
  Report Type: 
  Country: None (occurrence: None)
  Receive Date: 20120724
  Receipt Date: 20120719
  Transmission Date: 20120928
  Serious: Yes (Hospitalization, Other)
  Sender: FDA-Public Use
  Company Number: JP-PFIZER INC-2012168474

PATIENT
  Age: 60 Year
  Sex: Female

DRUGS (4)
  1. MUCOSTA [Concomitant]
     Dosage: 200 MG, 1X/DAY
     Dates: start: 20110601, end: 20110616
  2. AZULFIDINE [Suspect]
     Indication: RHEUMATOID ARTHRITIS
     Dosage: 1000, UNK
     Route: 048
     Dates: start: 20110601, end: 20110616
  3. CELECOXIB [Concomitant]
     Indication: RHEUMATOID ARTHRITIS
     Dosage: 400 MG/DAY
     Route: 048
     Dates: start: 20110601, end: 20110616
  4. RHEUMATREX [Suspect]
     Indication: RHEUMATOID ARTHRITIS
     Dosage: 6 MG, WEEKLY
     Route: 048
     Dates: start: 20110601, end: 20110616

REACTIONS (1)
  - PERICARDITIS [None]
